FAERS Safety Report 10394664 (Version 1)
Quarter: 2014Q3

REPORT INFORMATION
  Report Type: Spontaneous
  Country: US (occurrence: US)
  Receive Date: 20140820
  Receipt Date: 20140820
  Transmission Date: 20150326
  Serious: Yes (Death, Hospitalization)
  Sender: FDA-Public Use
  Company Number: US-B.I. PHARMACEUTICALS,INC./RIDGEFIELD-2014-BI-38170BP

PATIENT
  Age: 69 Year
  Sex: Female

DRUGS (6)
  1. METOPROLOL TARTRATE. [Concomitant]
     Active Substance: METOPROLOL TARTRATE
     Dosage: 100 MG
     Route: 048
     Dates: end: 20130411
  2. SYNTHROID [Concomitant]
     Active Substance: LEVOTHYROXINE SODIUM
     Dosage: 1 ANZ
     Route: 048
     Dates: end: 20130411
  3. PRADAXA [Suspect]
     Active Substance: DABIGATRAN ETEXILATE MESYLATE
     Indication: PRODUCT USED FOR UNKNOWN INDICATION
     Route: 065
  4. RESTORIL [Concomitant]
     Active Substance: TEMAZEPAM
     Dosage: 7.5 MG
     Route: 065
     Dates: end: 20130411
  5. DEMADEX [Concomitant]
     Active Substance: TORSEMIDE
     Dosage: 20 MG
     Route: 065
     Dates: end: 20130411
  6. LASIX [Concomitant]
     Active Substance: FUROSEMIDE
     Dosage: 40 MG
     Route: 048
     Dates: end: 20130411

REACTIONS (7)
  - Fall [Unknown]
  - Head injury [Unknown]
  - Cardiac failure congestive [Fatal]
  - Pleural effusion [Unknown]
  - Pneumonia [Unknown]
  - Renal failure acute [Unknown]
  - Pulmonary hypertension [Fatal]

NARRATIVE: CASE EVENT DATE: 20130411
